FAERS Safety Report 10724462 (Version 1)
Quarter: 2015Q1

REPORT INFORMATION
  Report Type: Spontaneous
  Country: US (occurrence: None)
  Receive Date: 20150116
  Receipt Date: 20150116
  Transmission Date: 20150721
  Serious: Yes (Hospitalization, Disabling)
  Sender: FDA-Public Use
  Company Number: None

PATIENT
  Age: 51 Year
  Sex: Female
  Weight: 142.88 kg

DRUGS (1)
  1. TAMIFLU [Suspect]
     Active Substance: OSELTAMIVIR PHOSPHATE
     Indication: INFLUENZA
     Dosage: 1 CAPSULE  TWICE DAILY TAKEN BY MOUTH
     Route: 048
     Dates: start: 20140108, end: 20140113

REACTIONS (12)
  - Postictal state [None]
  - Upper limb fracture [None]
  - Joint dislocation [None]
  - Lethargy [None]
  - Seizure [None]
  - Device ineffective [None]
  - Loss of consciousness [None]
  - Joint range of motion decreased [None]
  - Asthenia [None]
  - Fatigue [None]
  - Disturbance in attention [None]
  - Fall [None]

NARRATIVE: CASE EVENT DATE: 20140113
